FAERS Safety Report 23054504 (Version 1)
Quarter: 2023Q4

REPORT INFORMATION
  Report Type: Report from Study
  Country: IN (occurrence: IN)
  Receive Date: 20231011
  Receipt Date: 20231011
  Transmission Date: 20240110
  Serious: Yes (Other)
  Sender: FDA-Public Use
  Company Number: IN-SA-2023SA304629

PATIENT
  Sex: Female

DRUGS (2)
  1. GLYBURIDE [Suspect]
     Active Substance: GLYBURIDE
     Indication: Gestational diabetes
     Dosage: 0.625 MG
     Route: 048
  2. GLYBURIDE [Suspect]
     Active Substance: GLYBURIDE
     Dosage: GRADUALLY INCREASING THE DOSE AND A MAXIMUM OF 2.5 MG
     Route: 048

REACTIONS (2)
  - Abortion late [Unknown]
  - Exposure during pregnancy [Unknown]
